FAERS Safety Report 26035344 (Version 1)
Quarter: 2025Q4

REPORT INFORMATION
  Report Type: Spontaneous
  Country: US (occurrence: US)
  Receive Date: 20251112
  Receipt Date: 20251112
  Transmission Date: 20260118
  Serious: No
  Sender: BAYER HEALTHCARE PHARMACEUTICALS INC.
  Company Number: US-BAYER-2025A144814

PATIENT
  Age: 39 Year
  Sex: Male

DRUGS (1)
  1. GADAVIST [Suspect]
     Active Substance: GADOBUTROL
     Indication: Magnetic resonance imaging heart
     Dosage: UNK UNK, ONCE
     Dates: start: 20251021, end: 20251021

REACTIONS (1)
  - Arteriovenous fistula [Unknown]
